FAERS Safety Report 7969291-4 (Version None)
Quarter: 2011Q4

REPORT INFORMATION
  Report Type: 
  Country: None (occurrence: None)
  Receive Date: 20111209
  Receipt Date: 20111205
  Transmission Date: 20120403
  Serious: Yes (Death, Other)
  Sender: FDA-Public Use
  Company Number: US-ASTRAZENECA-2011SE59944

PATIENT
  Age: 46 Year
  Sex: Female
  Weight: 59 kg

DRUGS (8)
  1. CLONIPINE [Concomitant]
     Dates: start: 20110907
  2. TOMPOMAX [Concomitant]
     Dates: start: 20110405
  3. PRESCTIC [Concomitant]
     Dates: start: 20110504
  4. SEROQUEL XR [Suspect]
     Indication: DEPRESSION
     Route: 048
     Dates: start: 20110817
  5. BENADRYL [Concomitant]
  6. SEROQUEL XR [Suspect]
     Route: 048
     Dates: start: 20110907
  7. DIPHENHYDRAMINE HCL [Concomitant]
     Dates: start: 20110907
  8. SEROQUEL XR [Suspect]
     Route: 048

REACTIONS (3)
  - MAJOR DEPRESSION [None]
  - DRUG INEFFECTIVE [None]
  - COMPLETED SUICIDE [None]
